FAERS Safety Report 5025043-9 (Version None)
Quarter: 2006Q2

REPORT INFORMATION
  Report Type: 
  Country: None (occurrence: None)
  Receive Date: 20060607
  Receipt Date: 20060603
  Transmission Date: 20061013
  Serious: Yes (Other)
  Sender: FDA-Public Use
  Company Number: 223250

PATIENT
  Age: 68 Year
  Sex: Male
  Weight: 68 kg

DRUGS (5)
  1. AVASTIN [Suspect]
     Indication: PANCREATIC CARCINOMA METASTATIC
     Dosage: 1490 MG, DAYS 1+15, INTRAVENOUS
     Route: 042
     Dates: start: 20060104, end: 20060118
  2. GEMCITABINE [Suspect]
     Indication: PANCREATIC CARCINOMA METASTATIC
     Dosage: 3860 MG, DAYS 1+15, INTRAVENOUS
     Route: 042
     Dates: start: 20060104, end: 20060118
  3. OXALIPLATIN (OXALIPLATIN) [Suspect]
     Indication: PANCREATIC CARCINOMA METASTATIC
     Dosage: 386 MG, INTRAVENOUS
     Route: 042
     Dates: start: 20060104, end: 20060118
  4. ZOFRAN [Concomitant]
  5. KYTRIL [Concomitant]

REACTIONS (3)
  - CLOSTRIDIAL INFECTION [None]
  - DIARRHOEA [None]
  - DRUG TOXICITY [None]
